FAERS Safety Report 6428517-9 (Version None)
Quarter: 2009Q4

REPORT INFORMATION
  Report Type: 
  Country: None (occurrence: None)
  Receive Date: 20091102
  Receipt Date: 20091001
  Transmission Date: 20100525
  Serious: Yes (Death, Hospitalization)
  Sender: FDA-Public Use
  Company Number: 2009070034

PATIENT
  Age: 59 Year
  Sex: Female

DRUGS (4)
  1. TORSEMIDE [Suspect]
     Indication: PLEURAL EFFUSION
     Dosage: 8 MG (8 MG,1 IN 1 D),ORAL
     Route: 048
     Dates: start: 20090330, end: 20090606
  2. SUNITINIB MALATE (SUNITINIBI MALATE) [Suspect]
     Indication: BREAST CANCER
     Dosage: 37.5 MG (37.5 MG,1 IN 1 D),ORAL
     Route: 048
     Dates: start: 20081023, end: 20090429
  3. GABAPENTIN [Suspect]
     Dosage: 200 MG (200 MG,1 IN 1 D),ORAL
     Route: 048
     Dates: start: 20090105, end: 20090902
  4. BROMHEXINE HYDROCHLORIDE (BROMHEXINE HYDROCHLORIDE) [Concomitant]

REACTIONS (20)
  - ATELECTASIS [None]
  - BLOOD ALBUMIN DECREASED [None]
  - BLOOD THYROID STIMULATING HORMONE INCREASED [None]
  - BREAST CANCER METASTATIC [None]
  - COUGH [None]
  - DECREASED APPETITE [None]
  - DYSPNOEA [None]
  - GENERAL PHYSICAL HEALTH DETERIORATION [None]
  - HYDRONEPHROSIS [None]
  - MALIGNANT NEOPLASM PROGRESSION [None]
  - METASTASES TO BONE [None]
  - METASTASES TO CHEST WALL [None]
  - METASTASES TO LIVER [None]
  - METASTASES TO LYMPH NODES [None]
  - METASTASES TO PLEURA [None]
  - NEUTROPHIL COUNT DECREASED [None]
  - PAIN IN EXTREMITY [None]
  - PLEURAL EFFUSION [None]
  - PNEUMONIA PRIMARY ATYPICAL [None]
  - WEIGHT DECREASED [None]
